FAERS Safety Report 4436629-4 (Version None)
Quarter: 2004Q3

REPORT INFORMATION
  Report Type: 
  Country: None (occurrence: None)
  Receive Date: 20040830
  Receipt Date: 20040721
  Transmission Date: 20050211
  Serious: No
  Sender: FDA-Public Use
  Company Number: US-BRISTOL-MYERS SQUIBB COMPANY-12648283

PATIENT
  Age: 10 Year
  Sex: Female
  Weight: 39 kg

DRUGS (4)
  1. ABILIFY [Suspect]
     Indication: ANXIETY DISORDER
     Dosage: INITIATED AT 10 MG/DAY, INCREASED TO 15 MG/DAY
     Route: 048
  2. LISINOPRIL [Concomitant]
  3. LITHOBID [Concomitant]
  4. ASPIRIN [Concomitant]

REACTIONS (1)
  - DROOLING [None]
